FAERS Safety Report 8772663 (Version 1)
Quarter: 2012Q4

REPORT INFORMATION
  Report Type: Report from Study
  Country: BR (occurrence: BR)
  Receive Date: 20120905
  Receipt Date: 20120905
  Transmission Date: 20130627
  Serious: Yes (Other)
  Sender: FDA-Public Use
  Company Number: BR-PFIZER INC-2012216188

PATIENT
  Age: 57 Year
  Sex: Female

DRUGS (3)
  1. LIPITOR [Suspect]
     Indication: BLOOD CHOLESTEROL
     Dosage: 40 mg, every 12 hours
     Route: 048
     Dates: start: 2010
  2. ABLOK PLUS [Concomitant]
     Indication: HYPERTENSION
     Dosage: UNK
  3. LIVOLON [Concomitant]
     Indication: HORMONE REPLACEMENT THERAPY
     Dosage: one tablet in the morning
     Dates: start: 2005

REACTIONS (1)
  - Diabetes mellitus [Not Recovered/Not Resolved]
